FAERS Safety Report 15705383 (Version 1)
Quarter: 2018Q4

REPORT INFORMATION
  Report Type: Spontaneous
  Country: JP (occurrence: JP)
  Receive Date: 20181210
  Receipt Date: 20181210
  Transmission Date: 20190205
  Serious: Yes (Other)
  Sender: FDA-Public Use
  Company Number: PHHY2018JP179097

PATIENT
  Age: 50 Year
  Sex: Male
  Weight: 83 kg

DRUGS (6)
  1. UROKINASE [Concomitant]
     Active Substance: UROKINASE
     Indication: PRODUCT USED FOR UNKNOWN INDICATION
     Route: 065
  2. NOVASTAN [Suspect]
     Active Substance: ARGATROBAN
     Dosage: 3 MG, QD
     Route: 040
  3. NOVASTAN [Suspect]
     Active Substance: ARGATROBAN
     Dosage: 5 MG, QD
     Route: 040
  4. NOVASTAN [Suspect]
     Active Substance: ARGATROBAN
     Dosage: UNK (5 MCG/KG/MIN)
     Route: 041
  5. NOVASTAN [Suspect]
     Active Substance: ARGATROBAN
     Indication: HEPARIN-INDUCED THROMBOCYTOPENIA
     Dosage: UNK, UNK (0.25 MCG/KG/MIN)
     Route: 041
  6. NOVASTAN [Suspect]
     Active Substance: ARGATROBAN
     Dosage: 5 MG, QD
     Route: 040

REACTIONS (1)
  - Coagulopathy [Recovered/Resolved]
